FAERS Safety Report 13633683 (Version 1)
Quarter: 2017Q2

REPORT INFORMATION
  Report Type: Spontaneous
  Country: US (occurrence: US)
  Receive Date: 20170531
  Receipt Date: 20170531
  Transmission Date: 20170830
  Serious: No
  Sender: FDA-Public Use
  Company Number: US-ASTELLAS-1570925

PATIENT
  Sex: Female

DRUGS (9)
  1. FUROSEMIDE. [Concomitant]
     Active Substance: FUROSEMIDE
  2. TRIAMCINOLONE ACETONIDE. [Concomitant]
     Active Substance: TRIAMCINOLONE ACETONIDE
  3. TARCEVA [Suspect]
     Active Substance: ERLOTINIB HYDROCHLORIDE
     Indication: LUNG NEOPLASM MALIGNANT
     Dosage: ONE TABLET  BY MOUTH EVERY DAY
     Route: 048
     Dates: start: 20130312
  4. TRILYTE [Concomitant]
     Active Substance: POLYETHYLENE GLYCOL 3350\POTASSIUM CHLORIDE\SODIUM BICARBONATE\SODIUM CHLORIDE
  5. ATENOLOL. [Concomitant]
     Active Substance: ATENOLOL
  6. ADVAIR HFA [Concomitant]
     Active Substance: FLUTICASONE PROPIONATE\SALMETEROL XINAFOATE
  7. VENTOLIN HFA [Concomitant]
     Active Substance: ALBUTEROL SULFATE
  8. ZETIA [Concomitant]
     Active Substance: EZETIMIBE
  9. AMLODIPINE BESYLATE/BENAZEPRIL HYDROCHLORIDE [Concomitant]
     Active Substance: AMLODIPINE BESYLATE\BENAZEPRIL HYDROCHLORIDE

REACTIONS (1)
  - Alopecia [Not Recovered/Not Resolved]
